FAERS Safety Report 4692479-5 (Version None)
Quarter: 2005Q2

REPORT INFORMATION
  Report Type: 
  Country: None (occurrence: None)
  Receive Date: 20050613
  Receipt Date: 20050425
  Transmission Date: 20051028
  Serious: No
  Sender: FDA-Public Use
  Company Number: 2005-00874

PATIENT
  Sex: Female

DRUGS (6)
  1. VELCADE [Suspect]
     Indication: MULTIPLE MYELOMA
     Dosage: 2/WEEK
     Dates: start: 20050101, end: 20050421
  2. TOPROL-XL [Concomitant]
  3. PROVERA [Concomitant]
  4. LEVOTHYROXINE SODIUM [Concomitant]
  5. ZYRTEC [Concomitant]
  6. CALCIUM (CALCIUM CHLORIDE HEXAHYDRATE) [Concomitant]

REACTIONS (3)
  - PRURITUS [None]
  - SKIN NODULE [None]
  - URTICARIA [None]
